FAERS Safety Report 17894981 (Version 1)
Quarter: 2020Q2

REPORT INFORMATION
  Report Type: Spontaneous
  Country: GB (occurrence: GB)
  Receive Date: 20200615
  Receipt Date: 20200615
  Transmission Date: 20200714
  Serious: Yes (Other)
  Sender: FDA-Public Use
  Company Number: GB-ACCORD-185268

PATIENT
  Age: 72 Year
  Sex: Male

DRUGS (4)
  1. PEMETREXED. [Concomitant]
     Active Substance: PEMETREXED
     Indication: NON-SMALL CELL LUNG CANCER
     Dates: start: 20191007, end: 20200225
  2. CARBOPLATIN. [Suspect]
     Active Substance: CARBOPLATIN
     Indication: NON-SMALL CELL LUNG CANCER
     Dosage: STRENGTH 10 MG/ML
     Dates: start: 20191007, end: 20200225
  3. PREDNISONE. [Concomitant]
     Active Substance: PREDNISONE
     Dosage: 1MG/KG
  4. KEYTRUDA [Concomitant]
     Active Substance: PEMBROLIZUMAB
     Indication: NON-SMALL CELL LUNG CANCER
     Dates: start: 20191007, end: 20200225

REACTIONS (2)
  - Autoimmune haemolytic anaemia [Unknown]
  - Dyspnoea [Unknown]

NARRATIVE: CASE EVENT DATE: 20200525
